FAERS Safety Report 24889547 (Version 1)
Quarter: 2025Q1

REPORT INFORMATION
  Report Type: Report from Study
  Country: US (occurrence: US)
  Receive Date: 20250127
  Receipt Date: 20250127
  Transmission Date: 20250409
  Serious: Yes (Hospitalization)
  Sender: EISAI
  Company Number: US-Eisai-EC-2025-182910

PATIENT
  Age: 76 Year
  Sex: Female

DRUGS (6)
  1. LENVIMA [Suspect]
     Active Substance: LENVATINIB
     Indication: Renal cancer
     Route: 048
     Dates: start: 20241017
  2. LENVIMA [Suspect]
     Active Substance: LENVATINIB
     Route: 048
  3. KEPPRA [Concomitant]
     Active Substance: LEVETIRACETAM
  4. LEVOTHYROXINE [Concomitant]
     Active Substance: LEVOTHYROXINE
  5. LACOSAMIDE [Concomitant]
     Active Substance: LACOSAMIDE
  6. METOPROLOL S [Concomitant]

REACTIONS (1)
  - Seizure [Recovered/Resolved]
